FAERS Safety Report 5161812-2 (Version None)
Quarter: 2006Q4

REPORT INFORMATION
  Report Type: 
  Country: None (occurrence: None)
  Receive Date: 20061130
  Receipt Date: 20061107
  Transmission Date: 20070319
  Serious: No
  Sender: FDA-Public Use
  Company Number: CH-ELI_LILLY_AND_COMPANY-CH200611001793

PATIENT
  Age: 67 Year
  Sex: Male

DRUGS (6)
  1. CIALIS [Suspect]
     Indication: ERECTILE DYSFUNCTION
     Dosage: 20 MG, AS NEEDED
     Route: 048
     Dates: start: 20060927
  2. CIALIS [Suspect]
     Dosage: 5 MG, AS NEEDED
     Route: 048
     Dates: start: 20060101
  3. LISINOPRIL [Concomitant]
     Indication: HYPERTENSION
     Dosage: 20 MG, DAILY (1/D)
     Route: 048
     Dates: start: 20050101
  4. THIAZIDES [Concomitant]
     Indication: HYPERTENSION
     Dosage: 12.5 MG, DAILY (1/D)
     Route: 048
     Dates: start: 20050101
  5. METOPROLOL SUCCINATE [Concomitant]
     Indication: HYPERTENSION
     Dosage: 10 MG, DAILY (1/D)
     Route: 048
     Dates: start: 20050101
  6. COMPLAMIN [Concomitant]
     Indication: HYPERTENSION
     Dosage: 500 MG, DAILY (1/D)
     Route: 048
     Dates: start: 20050101

REACTIONS (5)
  - ACCOMMODATION DISORDER [None]
  - FATIGUE [None]
  - TACHYCARDIA [None]
  - VENTRICULAR EXTRASYSTOLES [None]
  - VISION BLURRED [None]
